FAERS Safety Report 6567181-5 (Version None)
Quarter: 2010Q1

REPORT INFORMATION
  Report Type: 
  Country: None (occurrence: None)
  Receive Date: 20100202
  Receipt Date: 20100126
  Transmission Date: 20100710
  Serious: Yes (Other)
  Sender: FDA-Public Use
  Company Number: CHPA2010US01884

PATIENT
  Age: 5 Year
  Sex: Male

DRUGS (1)
  1. TRIAMINIC THIN STRIPS-COUGH AND RUNNY NOSE (NCH) [Suspect]
     Indication: NASOPHARYNGITIS
     Dosage: UNK, UNK
     Route: 048
     Dates: start: 20100101, end: 20100101

REACTIONS (2)
  - CONVULSION [None]
  - OVERDOSE [None]
